FAERS Safety Report 13963419 (Version 1)
Quarter: 2017Q3

REPORT INFORMATION
  Report Type: Spontaneous
  Country: US (occurrence: None)
  Receive Date: 20170913
  Receipt Date: 20170913
  Transmission Date: 20171128
  Serious: Yes (Hospitalization)
  Sender: FDA-Public Use
  Company Number: None

PATIENT
  Age: 78 Year
  Sex: Male

DRUGS (23)
  1. COREG [Concomitant]
     Active Substance: CARVEDILOL
  2. AUGMENTIN [Concomitant]
     Active Substance: AMOXICILLIN\CLAVULANATE POTASSIUM
  3. LASIX [Concomitant]
     Active Substance: FUROSEMIDE
  4. PREDNISONE. [Concomitant]
     Active Substance: PREDNISONE
  5. VITAMIN D [Concomitant]
     Active Substance: CHOLECALCIFEROL
  6. COUMADIN [Concomitant]
     Active Substance: WARFARIN SODIUM
  7. SIROLIMUS. [Concomitant]
     Active Substance: SIROLIMUS
  8. LUPRON [Suspect]
     Active Substance: LEUPROLIDE ACETATE
     Indication: NEOPLASM MALIGNANT
     Dosage: 30MG EVERY 4 MONTHS SUB-Q
     Route: 058
     Dates: start: 20161103
  9. ALLOPURINOL. [Concomitant]
     Active Substance: ALLOPURINOL
  10. EFFEXOR XR [Concomitant]
     Active Substance: VENLAFAXINE HYDROCHLORIDE
  11. FLONASE [Concomitant]
     Active Substance: FLUTICASONE PROPIONATE
  12. PRAVASTATIN. [Concomitant]
     Active Substance: PRAVASTATIN
  13. SIROLIMUS. [Suspect]
     Active Substance: SIROLIMUS
     Indication: NEOPLASM MALIGNANT
     Route: 048
     Dates: start: 20160112
  14. PRILOSEC [Concomitant]
     Active Substance: OMEPRAZOLE MAGNESIUM
  15. ADLT MULTIVI CHW GUMMIES [Concomitant]
  16. REMERON [Concomitant]
     Active Substance: MIRTAZAPINE
  17. LANTUS [Concomitant]
     Active Substance: INSULIN GLARGINE
  18. LISINOPRIL. [Concomitant]
     Active Substance: LISINOPRIL
  19. REGLAN [Concomitant]
     Active Substance: METOCLOPRAMIDE HYDROCHLORIDE
  20. SYNTHROID [Concomitant]
     Active Substance: LEVOTHYROXINE SODIUM
  21. FLOMAX [Concomitant]
     Active Substance: TAMSULOSIN HYDROCHLORIDE
  22. HUMALOG MIX [Concomitant]
     Active Substance: INSULIN LISPRO
  23. SODIUM BICAR [Concomitant]

REACTIONS (1)
  - Pulmonary oedema [None]
